FAERS Safety Report 4763761-8 (Version None)
Quarter: 2005Q3

REPORT INFORMATION
  Report Type: 
  Country: None (occurrence: None)
  Receive Date: 20050908
  Receipt Date: 20050830
  Transmission Date: 20060218
  Serious: Yes (Other)
  Sender: FDA-Public Use
  Company Number: PHFR2005GB02905

PATIENT
  Sex: Female

DRUGS (8)
  1. TEGRETOL [Suspect]
     Dosage: 600MG PER DAY
     Route: 065
     Dates: start: 20000101
  2. ERYTHROMYCIN [Suspect]
     Route: 065
  3. ATORVASTATIN CALCIUM [Concomitant]
     Route: 065
  4. ADALAT SL - SLOW RELEASE [Concomitant]
     Route: 065
  5. CARDURA CR [Concomitant]
     Route: 065
  6. IRBESARTAN [Concomitant]
     Route: 065
  7. FYBOGEL [Concomitant]
     Route: 065
  8. RAMIPRIL [Concomitant]
     Route: 065

REACTIONS (6)
  - AMNESIA [None]
  - CELLULITIS [None]
  - CONFUSIONAL STATE [None]
  - DIARRHOEA [None]
  - FAECAL INCONTINENCE [None]
  - MALAISE [None]
